FAERS Safety Report 6219072-7 (Version None)
Quarter: 2009Q2

REPORT INFORMATION
  Report Type: 
  Country: None (occurrence: None)
  Receive Date: 20090609
  Receipt Date: 20070502
  Transmission Date: 20091009
  Serious: Yes (Hospitalization)
  Sender: FDA-Public Use
  Company Number: US-ASTRAZENECA-2006UW26136

PATIENT
  Age: 377 Month
  Sex: Male
  Weight: 88.9 kg

DRUGS (23)
  1. SEROQUEL [Suspect]
     Indication: DEPRESSION
     Dosage: 200 - 875 MG DAILY
     Route: 048
     Dates: start: 20051128
  2. SEROQUEL [Suspect]
     Indication: POST-TRAUMATIC STRESS DISORDER
     Dosage: 200 - 875 MG DAILY
     Route: 048
     Dates: start: 20051128
  3. SEROQUEL [Suspect]
     Route: 048
     Dates: start: 20060101
  4. SEROQUEL [Suspect]
     Route: 048
     Dates: start: 20060101
  5. GEODON [Concomitant]
     Dates: start: 20050101
  6. GEODON [Concomitant]
     Dosage: 60 - 160 MG DAILY
     Route: 048
     Dates: start: 20060302
  7. RISPERDAL [Concomitant]
     Dates: start: 20060101
  8. RISPERDAL [Concomitant]
     Dosage: 0.5 - 2 MG DAILY
     Dates: start: 20030318
  9. STELAZINE [Concomitant]
     Dates: start: 19900101
  10. ZYPREXA [Concomitant]
     Dates: start: 20040101
  11. LORAZEPAM [Concomitant]
     Dates: start: 20060101
  12. EFFEXOR XR [Concomitant]
     Dosage: 75 - 300 MG DAILY
     Route: 048
     Dates: start: 20060302
  13. TRAZODONE HCL [Concomitant]
     Dosage: 75 - 300 MG DAILY
     Route: 048
     Dates: start: 20030318
  14. AMBIEN [Concomitant]
     Dates: start: 20060811
  15. HYDROCHLOROTHIAZIDE [Concomitant]
     Dates: start: 20060302
  16. PRINIVIL [Concomitant]
     Route: 048
     Dates: start: 20060302
  17. LIPITOR [Concomitant]
     Route: 048
     Dates: start: 20061009
  18. ATIVAN [Concomitant]
     Route: 048
     Dates: start: 20060802
  19. LAMICTAL [Concomitant]
     Dates: start: 20061212
  20. SYMBYAX [Concomitant]
     Dates: start: 20050101
  21. KLONOPIN [Concomitant]
     Dosage: 2 - 3 MG DAILY
     Dates: start: 20071115
  22. PREVACID [Concomitant]
     Dates: start: 20030904
  23. WELLBUTRIN XL [Concomitant]
     Dates: start: 20051114

REACTIONS (6)
  - BLOOD CHOLESTEROL INCREASED [None]
  - BLOOD TRIGLYCERIDES INCREASED [None]
  - DEPRESSION [None]
  - DIABETES MELLITUS [None]
  - POST-TRAUMATIC STRESS DISORDER [None]
  - SUICIDE ATTEMPT [None]
